FAERS Safety Report 7813335-7 (Version None)
Quarter: 2011Q4

REPORT INFORMATION
  Report Type: 
  Country: None (occurrence: None)
  Receive Date: 20111013
  Receipt Date: 20110929
  Transmission Date: 20120403
  Serious: Yes (Other)
  Sender: FDA-Public Use
  Company Number: US-ROCHE-1002361

PATIENT
  Sex: Male

DRUGS (2)
  1. ACCUTANE [Suspect]
     Indication: ACNE
     Route: 065
     Dates: start: 19990101, end: 20000101
  2. AMNESTEEM [Suspect]
     Indication: ACNE
     Dates: start: 20040901, end: 20050201

REACTIONS (2)
  - COLITIS ULCERATIVE [None]
  - ANXIETY [None]
